FAERS Safety Report 14604532 (Version 3)
Quarter: 2018Q2

REPORT INFORMATION
  Report Type: Spontaneous
  Country: JP (occurrence: JP)
  Receive Date: 20180306
  Receipt Date: 20180416
  Transmission Date: 20180711
  Serious: Yes (Death, Hospitalization, Other)
  Sender: FDA-Public Use
  Company Number: JP-BAYER-2018-020896

PATIENT
  Age: 66 Year
  Sex: Male
  Weight: 54.4 kg

DRUGS (11)
  1. BIO-THREE [Concomitant]
     Active Substance: HERBALS
     Indication: DIARRHOEA
     Dosage: DAILY DOSE 3 DF
     Route: 048
     Dates: start: 20170223, end: 20180222
  2. FUROSEMIDE. [Concomitant]
     Active Substance: FUROSEMIDE
     Indication: OEDEMA DUE TO HEPATIC DISEASE
     Dosage: DAILY DOSE 1 DF
     Route: 048
     Dates: start: 20171101, end: 20180222
  3. STIVARGA [Suspect]
     Active Substance: REGORAFENIB
     Indication: HEPATOCELLULAR CARCINOMA
     Dosage: DAILY DOSE 160 MG
     Route: 048
     Dates: start: 20170817, end: 20170907
  4. STIVARGA [Suspect]
     Active Substance: REGORAFENIB
     Indication: HEPATOCELLULAR CARCINOMA
     Dosage: DAILY DOSE 160 MG
     Route: 048
     Dates: end: 20171228
  5. PARIET [Concomitant]
     Active Substance: RABEPRAZOLE SODIUM
     Indication: GASTROOESOPHAGEAL REFLUX DISEASE
     Dosage: DAILY DOSE 1 DF
     Route: 048
     Dates: start: 20160802, end: 20180222
  6. URSO [Concomitant]
     Active Substance: URSODIOL
     Indication: HEPATIC CIRRHOSIS
     Dosage: DAILY DOSE 3 DF
     Route: 048
     Dates: start: 20160427, end: 20180222
  7. STIVARGA [Suspect]
     Active Substance: REGORAFENIB
     Indication: HEPATOCELLULAR CARCINOMA
     Dosage: DAILY DOSE 160 MG
     Route: 048
     Dates: start: 20170704, end: 20170724
  8. STIVARGA [Suspect]
     Active Substance: REGORAFENIB
     Indication: HEPATOCELLULAR CARCINOMA
     Dosage: DAILY DOSE 160 MG
     Route: 048
     Dates: start: 20170914, end: 20171004
  9. STIVARGA [Suspect]
     Active Substance: REGORAFENIB
     Indication: HEPATOCELLULAR CARCINOMA
     Dosage: DAILY DOSE 160 MG
     Route: 048
     Dates: start: 20180125, end: 20180214
  10. AVAPRO [Concomitant]
     Active Substance: IRBESARTAN
     Indication: HYPERTENSION
     Dosage: DAILY DOSE 2 DF
     Route: 048
     Dates: end: 20180222
  11. SPIRONOLACTONE. [Concomitant]
     Active Substance: SPIRONOLACTONE
     Indication: OEDEMA DUE TO HEPATIC DISEASE
     Dosage: DAILY DOSE 1 DF
     Route: 048
     Dates: start: 20170711, end: 20180222

REACTIONS (18)
  - Unresponsive to stimuli [Fatal]
  - Sepsis [Fatal]
  - Jaundice [Recovered/Resolved]
  - Jaundice [None]
  - Diarrhoea [Recovered/Resolved]
  - Peripheral coldness [Fatal]
  - Cholangitis infective [Fatal]
  - Bile duct obstruction [Fatal]
  - Fall [Fatal]
  - Cholangitis infective [Recovered/Resolved]
  - Neoplasm progression [Not Recovered/Not Resolved]
  - General physical health deterioration [Not Recovered/Not Resolved]
  - Cardio-respiratory arrest [Fatal]
  - Pyrexia [Recovered/Resolved]
  - C-reactive protein increased [Fatal]
  - Hepatic function abnormal [Not Recovered/Not Resolved]
  - Hepatocellular carcinoma [Fatal]
  - Yellow skin [Fatal]

NARRATIVE: CASE EVENT DATE: 20171010
